FAERS Safety Report 9221083 (Version 1)
Quarter: 2013Q2

REPORT INFORMATION
  Report Type: Spontaneous
  Country: US (occurrence: US)
  Receive Date: 20130409
  Receipt Date: 20130409
  Transmission Date: 20140414
  Serious: Yes (Death)
  Sender: FDA-Public Use
  Company Number: US-PFIZER INC-2013108902

PATIENT
  Age: 41 Year
  Sex: Male
  Weight: 108.84 kg

DRUGS (6)
  1. AZITHROMYCIN [Suspect]
     Indication: PHARYNGITIS STREPTOCOCCAL
     Dosage: UNK
     Dates: start: 20130402
  2. AZITHROMYCIN [Suspect]
     Indication: INFLUENZA
  3. COMPAZINE [Concomitant]
     Dosage: UNK
  4. NYQUIL [Concomitant]
     Dosage: UNK
  5. DAYQUIL [Concomitant]
     Dosage: UNK
  6. CEPACOL [Concomitant]
     Dosage: UNK

REACTIONS (1)
  - Cardiac arrest [Fatal]
